FAERS Safety Report 13383728 (Version 1)
Quarter: 2017Q1

REPORT INFORMATION
  Report Type: Spontaneous
  Country: US (occurrence: US)
  Receive Date: 20170329
  Receipt Date: 20170329
  Transmission Date: 20170429
  Serious: Yes (Other)
  Sender: FDA-Public Use
  Company Number: US-ELI_LILLY_AND_COMPANY-US201703008281

PATIENT
  Sex: Female

DRUGS (5)
  1. PREDNISONE. [Suspect]
     Active Substance: PREDNISONE
     Indication: PRODUCT USED FOR UNKNOWN INDICATION
     Dosage: UNK, UNKNOWN
     Route: 065
  2. HUMALOG [Suspect]
     Active Substance: INSULIN LISPRO
     Indication: DIABETES MELLITUS
     Dosage: UNK, PRN
     Route: 058
  3. HUMULIN R [Suspect]
     Active Substance: INSULIN HUMAN
     Indication: GESTATIONAL DIABETES
     Dosage: UNK, UNKNOWN
     Route: 058
     Dates: start: 201301, end: 201305
  4. HUMALOG [Suspect]
     Active Substance: INSULIN LISPRO
     Dosage: 15 U, EACH EVENING
     Route: 058
  5. HUMALOG [Suspect]
     Active Substance: INSULIN LISPRO
     Dosage: 10 U, LUNCH
     Route: 058

REACTIONS (14)
  - Labour complication [Recovered/Resolved]
  - Maternal exposure during pregnancy [Unknown]
  - Blood glucose decreased [Recovered/Resolved]
  - Exposure during breast feeding [Unknown]
  - Placental necrosis [Recovered/Resolved]
  - Swelling face [Recovered/Resolved]
  - Eye swelling [Recovered/Resolved]
  - Anaphylactic shock [Recovered/Resolved]
  - Blood glucose increased [Unknown]
  - Loss of consciousness [Unknown]
  - Anaphylactic reaction [Recovered/Resolved]
  - Pharyngeal oedema [Recovered/Resolved]
  - Underdose [Recovered/Resolved]
  - Mast cell activation syndrome [Not Recovered/Not Resolved]

NARRATIVE: CASE EVENT DATE: 201301
